FAERS Safety Report 8225630-0 (Version None)
Quarter: 2012Q1

REPORT INFORMATION
  Report Type: 
  Country: None (occurrence: None)
  Receive Date: 20120321
  Receipt Date: 20120316
  Transmission Date: 20120608
  Serious: Yes (Death, Other)
  Sender: FDA-Public Use
  Company Number: US-ABBOTT-12P-163-0916706-00

PATIENT
  Age: 87 Year
  Sex: Female

DRUGS (1)
  1. SYNTHROID [Suspect]
     Indication: THYROID DISORDER
     Dates: start: 19580101

REACTIONS (4)
  - SPINAL DEFORMITY [None]
  - ARTHRALGIA [None]
  - DEATH [None]
  - DEFORMITY THORAX [None]
